FAERS Safety Report 25094481 (Version 1)
Quarter: 2025Q1

REPORT INFORMATION
  Report Type: Spontaneous
  Country: US (occurrence: None)
  Receive Date: 20250318
  Receipt Date: 20250318
  Transmission Date: 20250409
  Serious: Yes (Other)
  Sender: FDA-CTU
  Company Number: None

PATIENT
  Age: 42 Year
  Sex: Female
  Weight: 59.4 kg

DRUGS (1)
  1. CIPROFLOXACIN\DEXAMETHASONE [Suspect]
     Active Substance: CIPROFLOXACIN\DEXAMETHASONE
     Indication: Ear infection
     Dosage: 4 DRO(S) TWICE A DAY AURICULAR (OTIC)
     Route: 001

REACTIONS (6)
  - Ear pain [None]
  - Discomfort [None]
  - Erythema [None]
  - Ear infection [None]
  - Drug hypersensitivity [None]
  - Impaired work ability [None]

NARRATIVE: CASE EVENT DATE: 20250310
